FAERS Safety Report 10357791 (Version 1)
Quarter: 2014Q3

REPORT INFORMATION
  Report Type: Spontaneous
  Country: US (occurrence: None)
  Receive Date: 20140730
  Receipt Date: 20140730
  Transmission Date: 20150326
  Serious: No
  Sender: FDA-Public Use
  Company Number: A401293130

PATIENT
  Age: 74 Year
  Sex: Male
  Weight: 68 kg

DRUGS (5)
  1. TIMOLOL MALEATE. [Suspect]
     Active Substance: TIMOLOL MALEATE
     Route: 047
     Dates: start: 20120103, end: 20120704
  2. ZIOPTAN [Suspect]
     Active Substance: TAFLUPROST
     Indication: OPEN ANGLE GLAUCOMA
     Route: 047
     Dates: start: 20120103, end: 20120704
  3. METOPROLOL [Concomitant]
     Active Substance: METOPROLOL
  4. FUROSEMIDE. [Concomitant]
     Active Substance: FUROSEMIDE
  5. KETOPROFEN. [Concomitant]
     Active Substance: KETOPROFEN

REACTIONS (3)
  - Hepatic cirrhosis [None]
  - Anaemia [None]
  - Toxic encephalopathy [None]

NARRATIVE: CASE EVENT DATE: 20120325
